FAERS Safety Report 10162001 (Version 1)
Quarter: 2014Q2

REPORT INFORMATION
  Report Type: Spontaneous
  Country: US (occurrence: None)
  Receive Date: 20140508
  Receipt Date: 20140508
  Transmission Date: 20141212
  Serious: No
  Sender: FDA-Public Use
  Company Number: None

PATIENT
  Age: 66 Year
  Sex: Male
  Weight: 90.5 kg

DRUGS (1)
  1. BUPRENORPHINE/NALOXONE [Suspect]
     Indication: DRUG ABUSE
     Route: 048
     Dates: start: 20140407, end: 20140507

REACTIONS (3)
  - Product solubility abnormal [None]
  - Dysgeusia [None]
  - Drug effect decreased [None]
